FAERS Safety Report 17120570 (Version 1)
Quarter: 2019Q4

REPORT INFORMATION
  Report Type: Spontaneous
  Country: IT (occurrence: IT)
  Receive Date: 20191206
  Receipt Date: 20191206
  Transmission Date: 20200122
  Serious: Yes (Other)
  Sender: FDA-Public Use
  Company Number: IT-ALLERGAN-1949383US

PATIENT
  Sex: Female

DRUGS (3)
  1. MESALAZINE UNK [Suspect]
     Active Substance: MESALAMINE
     Indication: COLITIS ULCERATIVE
     Dosage: 1600 MG, QD
     Route: 048
     Dates: start: 20191109, end: 20191109
  2. METRONIDAZOLE. [Suspect]
     Active Substance: METRONIDAZOLE
     Indication: COLITIS ULCERATIVE
     Dosage: 2G, QD
     Route: 042
     Dates: start: 20191108, end: 20191110
  3. CIPROXIN                           /00697201/ [Suspect]
     Active Substance: CIPROFLOXACIN
     Indication: COLITIS ULCERATIVE
     Dosage: 1 G, QD
     Route: 048
     Dates: start: 20191108, end: 20191109

REACTIONS (1)
  - Angioedema [Recovering/Resolving]

NARRATIVE: CASE EVENT DATE: 20191110
